FAERS Safety Report 12278300 (Version 1)
Quarter: 2016Q2

REPORT INFORMATION
  Report Type: Spontaneous
  Country: FR (occurrence: FR)
  Receive Date: 20160418
  Receipt Date: 20160418
  Transmission Date: 20160815
  Serious: Yes (Hospitalization, Other)
  Sender: FDA-Public Use
  Company Number: FR-AMGEN-FRASP2016046729

PATIENT
  Age: 63 Year
  Sex: Male

DRUGS (5)
  1. ENBREL [Suspect]
     Active Substance: ETANERCEPT
     Indication: RHEUMATOID ARTHRITIS
     Dosage: UNK
     Route: 051
     Dates: start: 201602, end: 201603
  2. PREDNISOLONE ACETATE. [Concomitant]
     Active Substance: PREDNISOLONE ACETATE
     Dosage: 5 MG, DAILY
     Route: 048
  3. METHOTREXATE SODIUM. [Concomitant]
     Active Substance: METHOTREXATE SODIUM
     Dosage: 1 DF, WEEKLY
     Route: 051
  4. PREDNISOLONE ACETATE. [Concomitant]
     Active Substance: PREDNISOLONE ACETATE
     Dosage: INCREASED ON DISCHARGE
  5. FELODIPINE. [Concomitant]
     Active Substance: FELODIPINE
     Dosage: UNK
     Route: 048

REACTIONS (9)
  - Bronchitis [Recovering/Resolving]
  - Weight decreased [Unknown]
  - Product use issue [Unknown]
  - Acute respiratory distress syndrome [Recovering/Resolving]
  - Rheumatoid nodule [Unknown]
  - Herpes simplex [Unknown]
  - Interstitial lung disease [Recovering/Resolving]
  - Pneumonia chlamydial [Unknown]
  - Infection [Unknown]

NARRATIVE: CASE EVENT DATE: 2016
